FAERS Safety Report 5675671-2 (Version None)
Quarter: 2008Q1

REPORT INFORMATION
  Report Type: 
  Country: None (occurrence: None)
  Receive Date: 20080321
  Receipt Date: 20080312
  Transmission Date: 20080703
  Serious: Yes (Other)
  Sender: FDA-Public Use
  Company Number: PHEH2008US02800

PATIENT
  Age: 16 Year
  Sex: Female

DRUGS (1)
  1. TRILEPTAL [Suspect]

REACTIONS (2)
  - DENTAL CARIES [None]
  - GINGIVAL SWELLING [None]
